FAERS Safety Report 10074728 (Version 5)
Quarter: 2017Q2

REPORT INFORMATION
  Report Type: Spontaneous
  Country: US (occurrence: US)
  Receive Date: 20140414
  Receipt Date: 20170425
  Transmission Date: 20170829
  Serious: Yes (Other)
  Sender: FDA-Public Use
  Company Number: US-PFIZER INC-2014100043

PATIENT
  Sex: Female
  Weight: 61 kg

DRUGS (4)
  1. XALATAN [Suspect]
     Active Substance: LATANOPROST
     Indication: EYE DISORDER
  2. XALATAN [Suspect]
     Active Substance: LATANOPROST
     Indication: CORNEAL DYSTROPHY
  3. XALATAN [Suspect]
     Active Substance: LATANOPROST
     Indication: DIPLOPIA
     Dosage: 2 GTT, 1X/DAY [ONE DROP IN EACH EYE EVERY NIGHT] [125 MCG/2.5ML]
     Route: 047
     Dates: start: 1997
  4. XALATAN [Suspect]
     Active Substance: LATANOPROST
     Indication: GLAUCOMA

REACTIONS (2)
  - Blindness unilateral [Unknown]
  - Retinal detachment [Unknown]
